FAERS Safety Report 7842092-3 (Version None)
Quarter: 2011Q4

REPORT INFORMATION
  Report Type: 
  Country: None (occurrence: None)
  Receive Date: 20111024
  Receipt Date: 20111024
  Transmission Date: 20120403
  Serious: No
  Sender: FDA-Public Use
  Company Number: None

PATIENT
  Age: 85 Year

DRUGS (1)
  1. LACTINOL HX PEDINOL + PHARMACAL [Suspect]
     Indication: PRURITUS
     Dosage: APPLY TO SURFACE 1/DAY

REACTIONS (1)
  - PRURITUS [None]
